FAERS Safety Report 9344827 (Version 1)
Quarter: 2013Q2

REPORT INFORMATION
  Report Type: Spontaneous
  Country: US (occurrence: US)
  Receive Date: 20130612
  Receipt Date: 20130612
  Transmission Date: 20140414
  Serious: Yes (Death)
  Sender: FDA-Public Use
  Company Number: US-GLAXOSMITHKLINE-A1026427A

PATIENT
  Age: 63 Year
  Sex: Male

DRUGS (4)
  1. COREG [Suspect]
     Indication: CARDIAC FAILURE CONGESTIVE
     Dosage: 25MG TWICE PER DAY
     Route: 048
     Dates: start: 2010
  2. WATER PILL [Concomitant]
  3. POTASSIUM [Concomitant]
  4. UNKNOWN MEDICATION [Concomitant]

REACTIONS (1)
  - Lung neoplasm malignant [Fatal]
